FAERS Safety Report 14349275 (Version 1)
Quarter: 2018Q1

REPORT INFORMATION
  Report Type: Spontaneous
  Country: BE (occurrence: BE)
  Receive Date: 20180104
  Receipt Date: 20180104
  Transmission Date: 20180509
  Serious: Yes (Hospitalization)
  Sender: FDA-Public Use
  Company Number: BE-SUN PHARMACEUTICAL INDUSTRIES LTD-2017RR-158821

PATIENT
  Age: 43 Year
  Sex: Male

DRUGS (35)
  1. RITUXIMAB. [Suspect]
     Active Substance: RITUXIMAB
     Dosage: R-CHOP ()
     Route: 065
  2. CYCLOPHOSPHAMIDE. [Suspect]
     Active Substance: CYCLOPHOSPHAMIDE
     Indication: DIFFUSE LARGE B-CELL LYMPHOMA
     Dosage: ()
     Route: 065
  3. DEXAMETHASONE. [Suspect]
     Active Substance: DEXAMETHASONE
     Indication: PRODUCT USED FOR UNKNOWN INDICATION
     Dosage: ()
     Route: 065
  4. ETOPOSIDE. [Suspect]
     Active Substance: ETOPOSIDE
     Indication: DIFFUSE LARGE B-CELL LYMPHOMA
     Dosage: ()
     Route: 065
     Dates: start: 2014
  5. ETOPOSIDE. [Suspect]
     Active Substance: ETOPOSIDE
     Indication: STEM CELL TRANSPLANT
     Dosage: ()
     Route: 065
     Dates: start: 2014
  6. RITUXIMAB. [Suspect]
     Active Substance: RITUXIMAB
     Indication: B-CELL LYMPHOMA
     Dosage: RITUXIMAB-BENDAMUSTIN ()
     Route: 065
     Dates: start: 201205
  7. RITUXIMAB. [Suspect]
     Active Substance: RITUXIMAB
     Dosage: R-CHOP ()
     Route: 065
     Dates: start: 2013
  8. OXALIPLATIN. [Suspect]
     Active Substance: OXALIPLATIN
     Indication: DIFFUSE LARGE B-CELL LYMPHOMA
     Dosage: ()
     Route: 065
  9. PREDNISONE. [Suspect]
     Active Substance: PREDNISONE
     Indication: DIFFUSE LARGE B-CELL LYMPHOMA
     Dosage: ()
     Route: 065
  10. PREDNISONE. [Suspect]
     Active Substance: PREDNISONE
     Dosage: ()
     Route: 065
     Dates: start: 201205
  11. ETOPOSIDE. [Suspect]
     Active Substance: ETOPOSIDE
     Dosage: ()
     Route: 065
     Dates: start: 2014
  12. BLINATUMOMAB [Suspect]
     Active Substance: BLINATUMOMAB
     Dosage: CONTINUOUS INFUSION
     Route: 065
     Dates: start: 20170104, end: 20170308
  13. CYTARABINE. [Suspect]
     Active Substance: CYTARABINE
     Indication: STEM CELL TRANSPLANT
     Dosage: ()
     Route: 065
     Dates: start: 2014
  14. GEMCITABINE [Suspect]
     Active Substance: GEMCITABINE\GEMCITABINE HYDROCHLORIDE
     Indication: DIFFUSE LARGE B-CELL LYMPHOMA
     Dosage: ()
     Route: 065
  15. RITUXIMAB. [Suspect]
     Active Substance: RITUXIMAB
     Indication: DIFFUSE LARGE B-CELL LYMPHOMA
     Dosage: R-CHOP ()
     Route: 065
     Dates: start: 2013
  16. VANCOMYCIN [Suspect]
     Active Substance: VANCOMYCIN
     Indication: DEVICE RELATED INFECTION
     Dosage: ()
     Route: 065
  17. BLINATUMOMAB [Suspect]
     Active Substance: BLINATUMOMAB
     Indication: DIFFUSE LARGE B-CELL LYMPHOMA
     Dosage: CONTINUOUS INFUSION
     Route: 065
     Dates: start: 20161229, end: 20170104
  18. DOXORUBICIN [Suspect]
     Active Substance: DOXORUBICIN
     Indication: DIFFUSE LARGE B-CELL LYMPHOMA
     Dosage: ()
     Route: 065
     Dates: start: 201205
  19. VINCRISTINE [Suspect]
     Active Substance: VINCRISTINE
     Indication: DIFFUSE LARGE B-CELL LYMPHOMA
     Dosage: ()
     Route: 065
  20. VINCRISTINE [Suspect]
     Active Substance: VINCRISTINE
     Dosage: ()
     Route: 065
     Dates: start: 201205
  21. IFOSFAMIDE. [Suspect]
     Active Substance: IFOSFAMIDE
     Indication: DIFFUSE LARGE B-CELL LYMPHOMA
     Dosage: ()
     Route: 065
     Dates: start: 2014
  22. BLINATUMOMAB [Suspect]
     Active Substance: BLINATUMOMAB
     Dosage: CONTINUOUS INFUSION
     Route: 065
     Dates: start: 20170105, end: 20170111
  23. MELPHALAN. [Suspect]
     Active Substance: MELPHALAN
     Indication: STEM CELL TRANSPLANT
     Dosage: ()
     Route: 065
     Dates: start: 201401
  24. ETOPOSIDE. [Suspect]
     Active Substance: ETOPOSIDE
     Dosage: ()
     Route: 065
     Dates: start: 2014
  25. RITUXIMAB. [Suspect]
     Active Substance: RITUXIMAB
     Dosage: RITUXIMAB-BENDAMUSTIN ()
     Route: 065
     Dates: start: 201205
  26. RITUXIMAB. [Suspect]
     Active Substance: RITUXIMAB
     Dosage: R-CHOP ()
     Route: 065
  27. RITUXIMAB. [Suspect]
     Active Substance: RITUXIMAB
     Dosage: R-CHOP ()
     Route: 065
  28. VANCOMYCIN [Suspect]
     Active Substance: VANCOMYCIN
     Indication: STAPHYLOCOCCAL INFECTION
     Dosage: ()
     Route: 065
  29. CYCLOPHOSPHAMIDE. [Suspect]
     Active Substance: CYCLOPHOSPHAMIDE
     Dosage: ()
     Route: 065
     Dates: start: 201205
  30. DEXAMETHASONE. [Suspect]
     Active Substance: DEXAMETHASONE
     Route: 065
  31. CARMUSTINE [Suspect]
     Active Substance: CARMUSTINE
     Indication: STEM CELL TRANSPLANT
     Dosage: ()
     Route: 065
     Dates: start: 2014
  32. CARBOPLATIN. [Suspect]
     Active Substance: CARBOPLATIN
     Indication: DIFFUSE LARGE B-CELL LYMPHOMA
     Dosage: ()
     Route: 065
     Dates: start: 2014
  33. RITUXIMAB. [Suspect]
     Active Substance: RITUXIMAB
     Dosage: R-CHOP ()
     Route: 065
  34. BENDAMUSTINE HYDROCHLORIDE. [Suspect]
     Active Substance: BENDAMUSTINE HYDROCHLORIDE
     Indication: DIFFUSE LARGE B-CELL LYMPHOMA
     Dosage: ()
     Route: 065
  35. DOXORUBICIN [Suspect]
     Active Substance: DOXORUBICIN
     Dosage: ()
     Route: 065

REACTIONS (18)
  - Metastases to lung [Recovered/Resolved]
  - Metastases to bone marrow [Recovered/Resolved]
  - Pyrexia [Unknown]
  - Metastases to spleen [Recovered/Resolved]
  - Glomerular filtration rate decreased [Unknown]
  - Diffuse large B-cell lymphoma [Recovered/Resolved]
  - Cytopenia [Recovered/Resolved]
  - Renal impairment [Unknown]
  - End stage renal disease [Unknown]
  - Device related infection [Unknown]
  - Staphylococcal infection [Unknown]
  - Malignant neoplasm progression [Recovered/Resolved]
  - Metastases to muscle [Recovered/Resolved]
  - Metastases to liver [Recovered/Resolved]
  - Metastases to retroperitoneum [Recovered/Resolved]
  - Neutropenic sepsis [Unknown]
  - Drug ineffective [Recovered/Resolved]
  - Tubulointerstitial nephritis [Unknown]
